FAERS Safety Report 24464969 (Version 1)
Quarter: 2024Q4

REPORT INFORMATION
  Report Type: Report from Study
  Country: US (occurrence: US)
  Receive Date: 20241018
  Receipt Date: 20241018
  Transmission Date: 20250115
  Serious: No
  Sender: ROCHE
  Company Number: US-ROCHE-3511393

PATIENT
  Age: 50 Year
  Sex: Male
  Weight: 97.0 kg

DRUGS (16)
  1. XOLAIR [Suspect]
     Active Substance: OMALIZUMAB
     Indication: Asthma
     Dosage: ON 06/JAN/2021, HE RECEIVED LAST DOSE OF XOLAIR.
     Route: 058
  2. XOLAIR [Suspect]
     Active Substance: OMALIZUMAB
     Indication: Nasal polyps
  3. PREDNISONE [Concomitant]
     Active Substance: PREDNISONE
     Route: 048
     Dates: start: 20240212, end: 20240214
  4. ALBUTEROL [Concomitant]
     Active Substance: ALBUTEROL
  5. DULOXETINE [Concomitant]
     Active Substance: DULOXETINE
     Route: 048
     Dates: start: 20240129
  6. ARNUITY ELLIPTA [Concomitant]
     Active Substance: FLUTICASONE FUROATE
  7. MONTELUKAST SODIUM [Concomitant]
     Active Substance: MONTELUKAST SODIUM
     Route: 048
     Dates: start: 20240118
  8. FEXOFENADINE HYDROCHLORIDE [Concomitant]
     Active Substance: FEXOFENADINE HYDROCHLORIDE
     Route: 048
     Dates: start: 20240118
  9. TRELEGY ELLIPTA [Concomitant]
     Active Substance: FLUTICASONE FUROATE\UMECLIDINIUM BROMIDE\VILANTEROL TRIFENATATE
  10. PRAZOSIN HYDROCHLORIDE [Concomitant]
     Active Substance: PRAZOSIN HYDROCHLORIDE
     Dates: start: 20231207
  11. MIRTAZAPINE [Concomitant]
     Active Substance: MIRTAZAPINE
     Route: 048
     Dates: start: 20231207
  12. MELATONIN [Concomitant]
     Active Substance: MELATONIN
  13. METHOCARBAMOL [Concomitant]
     Active Substance: METHOCARBAMOL
     Route: 048
     Dates: start: 20231122
  14. TAMSULOSIN [Concomitant]
     Active Substance: TAMSULOSIN
     Route: 048
     Dates: start: 20231122
  15. GABAPENTIN [Concomitant]
     Active Substance: GABAPENTIN
     Route: 048
     Dates: start: 20231115
  16. DOXYCYCLINE HYCLATE [Concomitant]
     Active Substance: DOXYCYCLINE HYCLATE
     Route: 048
     Dates: start: 20240205

REACTIONS (2)
  - Off label use [Unknown]
  - No adverse event [Unknown]
